FAERS Safety Report 4709069-8 (Version None)
Quarter: 2005Q3

REPORT INFORMATION
  Report Type: 
  Country: None (occurrence: None)
  Receive Date: 20050708
  Receipt Date: 20050614
  Transmission Date: 20060218
  Serious: Yes (Hospitalization)
  Sender: FDA-Public Use
  Company Number: 2005SE03478

PATIENT
  Age: 49 Year
  Sex: Female

DRUGS (6)
  1. COKENZEN [Suspect]
     Indication: HYPERTENSION
     Route: 048
     Dates: end: 20050412
  2. LASIX [Suspect]
     Indication: HYPERTENSION
     Route: 048
     Dates: end: 20050412
  3. HYPERIUM [Suspect]
     Indication: HYPERTENSION
     Route: 048
     Dates: end: 20050412
  4. BEFIZAL [Suspect]
     Indication: HYPERCHOLESTEROLAEMIA
     Route: 048
     Dates: end: 20050412
  5. SOPROL [Suspect]
     Indication: HYPERTENSION
     Route: 048
     Dates: end: 20050412
  6. NEXEN [Suspect]
     Indication: DRUG USE FOR UNKNOWN INDICATION
     Route: 048
     Dates: start: 20050401, end: 20050412

REACTIONS (4)
  - DIALYSIS [None]
  - HEPATIC ENZYME INCREASED [None]
  - RENAL FAILURE ACUTE [None]
  - RHABDOMYOLYSIS [None]
